FAERS Safety Report 6850600-4 (Version None)
Quarter: 2010Q3

REPORT INFORMATION
  Report Type: 
  Country: None (occurrence: None)
  Receive Date: 20100716
  Receipt Date: 20071013
  Transmission Date: 20110219
  Serious: Yes (Other)
  Sender: FDA-Public Use
  Company Number: US-PFIZER INC-2007087369

PATIENT
  Sex: Female
  Weight: 68.181 kg

DRUGS (5)
  1. CHANTIX [Suspect]
     Indication: SMOKING CESSATION THERAPY
     Dates: start: 20070101, end: 20070101
  2. SYNTHROID [Concomitant]
  3. XENICAL [Concomitant]
  4. AMBIEN [Concomitant]
  5. METFORMIN HCL [Concomitant]
     Indication: DIABETES PROPHYLAXIS

REACTIONS (8)
  - ABNORMAL DREAMS [None]
  - BLOOD CHOLESTEROL INCREASED [None]
  - BLOOD TRIGLYCERIDES INCREASED [None]
  - EMOTIONAL DISORDER [None]
  - NAUSEA [None]
  - PSYCHOTIC DISORDER [None]
  - SLEEP DISORDER [None]
  - WEIGHT INCREASED [None]
